FAERS Safety Report 6198119-0 (Version None)
Quarter: 2009Q2

REPORT INFORMATION
  Report Type: 
  Country: None (occurrence: None)
  Receive Date: 20090514
  Receipt Date: 20080917
  Transmission Date: 20091009
  Serious: Yes (Other)
  Sender: FDA-Public Use
  Company Number: 52466

PATIENT
  Age: 55 Year
  Sex: Female

DRUGS (1)
  1. MITOMYCIN [Suspect]
     Indication: ANAL CANCER
     Dosage: 14MG
     Dates: start: 20080916

REACTIONS (1)
  - PYREXIA [None]
